FAERS Safety Report 4919786-2 (Version None)
Quarter: 2006Q1

REPORT INFORMATION
  Report Type: 
  Country: None (occurrence: None)
  Receive Date: 20060216
  Receipt Date: 20060126
  Transmission Date: 20060701
  Serious: Yes (Other)
  Sender: FDA-Public Use
  Company Number: ES200602000333

PATIENT
  Age: 18 Year
  Sex: Female

DRUGS (1)
  1. XIGRIS [Suspect]

REACTIONS (2)
  - PULMONARY HAEMORRHAGE [None]
  - THROMBOCYTOPENIA [None]
